FAERS Safety Report 7450968 (Version 5)
Quarter: 2022Q1

REPORT INFORMATION
  Report Type: Spontaneous
  Country: GR (occurrence: GR)
  Receive Date: 20100701
  Receipt Date: 20220302
  Transmission Date: 20220423
  Serious: Yes (Hospitalization, Other)
  Sender: FDA-Public Use
  Company Number: GXKR2010GR07023

PATIENT
  Age: 49 Year
  Sex: Male

DRUGS (7)
  1. RIFAMPIN [Suspect]
     Active Substance: RIFAMPIN
     Indication: Pericarditis tuberculous
     Dosage: UNK CONTINUED FOR AN ADDITIONAL 7 MONTHS
     Route: 065
  2. ISONIAZID [Suspect]
     Active Substance: ISONIAZID
     Indication: Pericarditis tuberculous
     Dosage: UNK CONTINUED FOR AN ADDITIONAL 7 MONTHS
     Route: 065
  3. PYRAZINAMIDE [Suspect]
     Active Substance: PYRAZINAMIDE
     Indication: Pericarditis tuberculous
     Dosage: UNK
     Route: 065
  4. INFLIXIMAB [Suspect]
     Active Substance: INFLIXIMAB
     Indication: Psoriatic arthropathy
     Dosage: UNK, 2 MONTHLY
     Route: 042
  5. STREPTOMYCIN [Suspect]
     Active Substance: STREPTOMYCIN SULFATE
     Indication: Tuberculosis
     Dosage: UNK
     Route: 065
  6. STREPTOMYCIN [Suspect]
     Active Substance: STREPTOMYCIN SULFATE
     Indication: Pericarditis tuberculous
  7. METHOTREXATE [Suspect]
     Active Substance: METHOTREXATE
     Indication: Psoriatic arthropathy
     Dosage: UNK
     Route: 065

REACTIONS (7)
  - Immune reconstitution inflammatory syndrome associated tuberculosis [Recovered/Resolved]
  - Tuberculosis [Recovered/Resolved]
  - Pericarditis tuberculous [Recovered/Resolved]
  - Necrosis [Recovered/Resolved]
  - Pericardial effusion [Recovered/Resolved]
  - Pleural effusion [Recovered/Resolved]
  - Lymph node tuberculosis [Recovered/Resolved]
